FAERS Safety Report 7462248-1 (Version None)
Quarter: 2011Q2

REPORT INFORMATION
  Report Type: 
  Country: None (occurrence: None)
  Receive Date: 20110506
  Receipt Date: 20110503
  Transmission Date: 20111010
  Serious: Yes (Other)
  Sender: FDA-Public Use
  Company Number: TH-PFIZER INC-2011095560

PATIENT

DRUGS (3)
  1. CEFOPERAZONE SODIUM [Suspect]
     Dosage: 3 G, 3X/DAY
     Route: 041
  2. SELEGILINE [Concomitant]
  3. GALANTAMINE HYDROBROMIDE [Concomitant]

REACTIONS (1)
  - CONVULSION [None]
